FAERS Safety Report 23628943 (Version 1)
Quarter: 2024Q1

REPORT INFORMATION
  Report Type: Spontaneous
  Country: US (occurrence: US)
  Receive Date: 20240313
  Receipt Date: 20240313
  Transmission Date: 20240410
  Serious: No
  Sender: FDA-Public Use
  Company Number: US-Calliditas-2024CAL00376

PATIENT
  Age: 30 Year
  Sex: Female

DRUGS (1)
  1. TARPEYO [Suspect]
     Active Substance: BUDESONIDE
     Indication: IgA nephropathy
     Route: 048
     Dates: start: 20240215

REACTIONS (4)
  - Balance disorder [Unknown]
  - Vision blurred [Unknown]
  - Nausea [Unknown]
  - Heart rate increased [Unknown]
